FAERS Safety Report 17984739 (Version 1)
Quarter: 2020Q3

REPORT INFORMATION
  Report Type: Report from Study
  Country: GR (occurrence: GR)
  Receive Date: 20200706
  Receipt Date: 20200706
  Transmission Date: 20201103
  Serious: Yes (Other)
  Sender: FDA-Public Use
  Company Number: GR-JNJFOC-20200637309

PATIENT
  Age: 55 Year
  Sex: Female
  Weight: 120 kg

DRUGS (3)
  1. VORTIOXETINE. [Concomitant]
     Active Substance: VORTIOXETINE
     Route: 048
     Dates: start: 20191201
  2. LAMOTRIGINE. [Concomitant]
     Active Substance: LAMOTRIGINE
     Route: 048
     Dates: start: 20191201
  3. SPRAVATO [Suspect]
     Active Substance: ESKETAMINE
     Indication: DEPRESSION
     Dates: start: 20191210, end: 20200626

REACTIONS (2)
  - Therapeutic product effect incomplete [Recovered/Resolved]
  - Suicidal ideation [Recovered/Resolved]

NARRATIVE: CASE EVENT DATE: 20200624
